FAERS Safety Report 8944537 (Version 1)
Quarter: 2012Q4

REPORT INFORMATION
  Report Type: 
  Country: US (occurrence: US)
  Receive Date: 20121204
  Receipt Date: 20121204
  Transmission Date: 20130627
  Serious: No
  Sender: FDA-Public Use
  Company Number: US-AMGEN-USASP2012060180

PATIENT
  Age: 54 Year
  Sex: Male

DRUGS (4)
  1. ENBREL [Suspect]
     Indication: PSORIATIC ARTHROPATHY
     Dosage: 50 mg, qwk
     Route: 058
     Dates: start: 20030409
  2. ENBREL [Suspect]
     Indication: PSORIASIS
  3. METHOTREXATE [Concomitant]
     Indication: PSORIATIC ARTHROPATHY
     Dosage: 2.5 mg, qwk
     Route: 048
     Dates: start: 200410, end: 201003
  4. METHOTREXATE [Concomitant]
     Dosage: 25 mg, qwk
     Route: 030
     Dates: start: 200412, end: 200906

REACTIONS (1)
  - Skin ulcer [Not Recovered/Not Resolved]
